FAERS Safety Report 9833441 (Version 1)
Quarter: 2014Q1

REPORT INFORMATION
  Report Type: Spontaneous
  Country: BR (occurrence: BR)
  Receive Date: 20140122
  Receipt Date: 20140122
  Transmission Date: 20141002
  Serious: Yes (Hospitalization, Other)
  Sender: FDA-Public Use
  Company Number: BR-AMGEN-BRASP2014003605

PATIENT
  Age: 13 Year
  Sex: Female
  Weight: 30 kg

DRUGS (5)
  1. ENBREL [Suspect]
     Indication: JUVENILE IDIOPATHIC ARTHRITIS
     Dosage: 25 MG, ONCE A WEEK
     Route: 058
     Dates: start: 2007, end: 201308
  2. ACTEMRA [Suspect]
     Indication: PRODUCT USED FOR UNKNOWN INDICATION
     Dosage: STRENGTH 200 MG, EVERY 15 DAY
     Route: 065
  3. METHOTREXATE [Concomitant]
     Dosage: 50 MG, ONCE A WEEK
     Route: 058
  4. SOMATROPIN [Concomitant]
     Dosage: 12 IU, 1X/DAY
  5. PREDNISONE [Concomitant]
     Dosage: UNSPECIFIED ONCE A DAY
     Route: 048

REACTIONS (10)
  - Myocarditis [Unknown]
  - Fatigue [Unknown]
  - Pyrexia [Unknown]
  - Cardiac arrest [Unknown]
  - Pain [Unknown]
  - Inflammation [Unknown]
  - Hypersensitivity [Unknown]
  - Local swelling [Unknown]
  - Injection site erythema [Unknown]
  - Injection site warmth [Unknown]
